FAERS Safety Report 4436532-X (Version None)
Quarter: 2004Q3

REPORT INFORMATION
  Report Type: 
  Country: None (occurrence: None)
  Receive Date: 20040830
  Receipt Date: 20040614
  Transmission Date: 20050211
  Serious: No
  Sender: FDA-Public Use
  Company Number: US-BRISTOL-MYERS SQUIBB COMPANY-12613733

PATIENT
  Age: 32 Year
  Sex: Male

DRUGS (4)
  1. ABILIFY [Suspect]
     Indication: SCHIZOPHRENIA, PARANOID TYPE
     Route: 048
     Dates: start: 20031101
  2. CELEXA [Concomitant]
  3. DIVALPROEX SODIUM [Concomitant]
  4. ALPRAZOLAM [Concomitant]

REACTIONS (3)
  - DYSARTHRIA [None]
  - PRESCRIBED OVERDOSE [None]
  - SPEECH DISORDER [None]
